FAERS Safety Report 8340674-6 (Version None)
Quarter: 2012Q1

REPORT INFORMATION
  Report Type: 
  Country: None (occurrence: None)
  Receive Date: 20120329
  Receipt Date: 20090903
  Transmission Date: 20120608
  Serious: Yes (Hospitalization)
  Sender: FDA-Public Use
  Company Number: PHEH2009US10371

PATIENT
  Sex: Male

DRUGS (2)
  1. PHENYTOIN [Concomitant]
  2. EXELON [Suspect]

REACTIONS (1)
  - CONVULSION [None]
